FAERS Safety Report 15915631 (Version 1)
Quarter: 2019Q1

REPORT INFORMATION
  Report Type: Spontaneous
  Country: US (occurrence: US)
  Receive Date: 20190204
  Receipt Date: 20190204
  Transmission Date: 20190417
  Serious: No
  Sender: FDA-Public Use
  Company Number: US-ABBVIE-18K-163-2575354-00

PATIENT
  Sex: Female

DRUGS (4)
  1. METHOTREXATE SODIUM. [Suspect]
     Active Substance: METHOTREXATE SODIUM
     Indication: PRODUCT USED FOR UNKNOWN INDICATION
     Dosage: 50MG/2ML SOLUTION 0.8 INJECTION PER WEEK
     Route: 030
  2. METHOTREXATE SODIUM. [Suspect]
     Active Substance: METHOTREXATE SODIUM
     Dosage: 50MG/2ML SOLUTION
     Route: 058
  3. METHOTREXATE SODIUM. [Suspect]
     Active Substance: METHOTREXATE SODIUM
     Dosage: 50MG/2ML SOLUTION 0.8 INJECTION PER WEEK
     Route: 058
  4. HUMIRA [Suspect]
     Active Substance: ADALIMUMAB
     Indication: PRODUCT USED FOR UNKNOWN INDICATION
     Route: 058

REACTIONS (9)
  - Middle insomnia [Unknown]
  - Therapeutic response shortened [Unknown]
  - Nausea [Recovering/Resolving]
  - Pain [Unknown]
  - Oesophageal spasm [Unknown]
  - Injection site pain [Unknown]
  - Condition aggravated [Unknown]
  - Incorrect dose administered [Unknown]
  - Injection site reaction [Not Recovered/Not Resolved]
